FAERS Safety Report 4723264-3 (Version None)
Quarter: 2005Q3

REPORT INFORMATION
  Report Type: 
  Country: None (occurrence: None)
  Receive Date: 20050719
  Receipt Date: 20040916
  Transmission Date: 20060218
  Serious: Yes (Hospitalization)
  Sender: FDA-Public Use
  Company Number: 204933

PATIENT
  Age: 61 Year
  Sex: Female
  Weight: 113.3993 kg

DRUGS (3)
  1. AVONEX [Suspect]
     Indication: MULTIPLE SCLEROSIS
     Dosage: 30 UG; QW; IM
     Route: 030
     Dates: end: 20040101
  2. AVONEX [Suspect]
     Indication: MULTIPLE SCLEROSIS
     Dosage: 30 UG; QW; IM
     Route: 030
     Dates: start: 19980101
  3. MEDICATION (NOS) [Concomitant]

REACTIONS (7)
  - DECUBITUS ULCER [None]
  - DEPRESSION [None]
  - HYPERHIDROSIS [None]
  - LIMB INJURY [None]
  - MULTIPLE SCLEROSIS [None]
  - SKIN LACERATION [None]
  - URINARY TRACT INFECTION [None]
